FAERS Safety Report 13389678 (Version 1)
Quarter: 2017Q1

REPORT INFORMATION
  Report Type: Spontaneous
  Country: DE (occurrence: DE)
  Receive Date: 20170330
  Receipt Date: 20170330
  Transmission Date: 20170429
  Serious: Yes (Other)
  Sender: FDA-Public Use
  Company Number: DE-TEVA-753690GER

PATIENT
  Age: 76 Year
  Sex: Male
  Weight: 125 kg

DRUGS (8)
  1. PANTOPRAZOL 20MG [Concomitant]
     Dosage: 20 MILLIGRAM DAILY;
  2. ASPIRIN. [Concomitant]
     Active Substance: ASPIRIN
     Dosage: 100 MILLIGRAM DAILY;
  3. JARDIANCE [Suspect]
     Active Substance: EMPAGLIFLOZIN
     Dosage: 10 MILLIGRAM DAILY;
  4. DUODART 0.5/0.4 MG [Concomitant]
     Dosage: .9 MILLIGRAM DAILY;
  5. XELEVIA 100MG [Suspect]
     Active Substance: SITAGLIPTIN PHOSPHATE
     Dosage: 100 MILLIGRAM DAILY;
  6. METFORMIN-RATIOPHARM 1000MG [Suspect]
     Active Substance: METFORMIN HYDROCHLORIDE
     Dosage: 2000 MILLIGRAM DAILY;
  7. EZETROL 10 MG [Concomitant]
     Dosage: 10 MILLIGRAM DAILY;
  8. ALLOPURINOL-RATIOPHARM 300MG [Concomitant]
     Dosage: 300 MILLIGRAM DAILY;

REACTIONS (12)
  - Gynaecomastia [Unknown]
  - General physical health deterioration [Unknown]
  - Weight decreased [Unknown]
  - Balanitis candida [Unknown]
  - Performance status decreased [Unknown]
  - Muscle atrophy [Unknown]
  - Alopecia [None]
  - Drug-induced liver injury [Unknown]
  - Cardiac discomfort [Unknown]
  - Fatigue [Unknown]
  - Pruritus [Unknown]
  - Autoimmune hepatitis [None]
